FAERS Safety Report 5263245-7 (Version None)
Quarter: 2007Q1

REPORT INFORMATION
  Report Type: 
  Country: None (occurrence: None)
  Receive Date: 20061219
  Receipt Date: 20060906
  Transmission Date: 20070707
  Serious: No
  Sender: FDA-Public Use
  Company Number: 2006US002070

PATIENT
  Age: 53 Year
  Sex: Female

DRUGS (7)
  1. VESICARE [Suspect]
     Indication: HYPERTONIC BLADDER
     Dosage: 5 MG, UID/QD, ORAL
     Route: 048
     Dates: start: 20060905
  2. ZOCOR [Concomitant]
  3. GLYBURIDE [Concomitant]
  4. METFORMIN (METFORMIN HYDROCHLORIDE) [Concomitant]
  5. LISINOPRIL (LISINOPRIL DIHYDRATE) [Concomitant]
  6. HYDROCHLOROTHIAZIDE [Concomitant]
  7. ALPRAZOLAM [Concomitant]

REACTIONS (1)
  - INSOMNIA [None]
